FAERS Safety Report 5306562-4 (Version None)
Quarter: 2007Q2

REPORT INFORMATION
  Report Type: 
  Country: None (occurrence: None)
  Receive Date: 20070418
  Receipt Date: 20070403
  Transmission Date: 20071010
  Serious: Yes (Hospitalization)
  Sender: FDA-Public Use
  Company Number: MEDI-0004510

PATIENT
  Age: 3 Month
  Sex: Female
  Weight: 3.32 kg

DRUGS (8)
  1. SYNAGIS [Suspect]
     Indication: ANTIVIRAL PROPHYLAXIS
     Dosage: 50 MG, 1 IN 30 D, INTRAMUSCULAR
     Route: 030
     Dates: start: 20051004, end: 20051004
  2. SYNAGIS [Suspect]
     Indication: PREMATURE BABY
     Dosage: 50 MG, 1 IN 30 D, INTRAMUSCULAR
     Route: 030
     Dates: start: 20051004, end: 20051004
  3. SYNAGIS [Suspect]
     Dosage: 50 MG, 1 IN 30 D, INTRAMUSCULAR
     Route: 030
     Dates: start: 20051031
  4. SYNAGIS [Suspect]
     Dosage: 75 MG, 1 IN 30 D, INTRAMUSCULAR
     Route: 030
     Dates: start: 20051205
  5. SYNAGIS [Suspect]
     Dosage: 75 MG, 1 IN 30 D, INTRAMUSCULAR
     Route: 030
     Dates: start: 20060109
  6. SYNAGIS [Suspect]
     Dosage: 75 MG, 1 IN 30 D, INTRAMUSCULAR
     Route: 030
     Dates: start: 20060213, end: 20060213
  7. VITAMIN D [Concomitant]
  8. FLUOR (SODIUM FLUORIDE) [Concomitant]

REACTIONS (3)
  - BRONCHIOLITIS [None]
  - HAEMOPHILUS INFECTION [None]
  - VIRAL RHINITIS [None]
